FAERS Safety Report 25024120 (Version 1)
Quarter: 2025Q1

REPORT INFORMATION
  Report Type: Report from Study
  Country: ZA (occurrence: ZA)
  Receive Date: 20250228
  Receipt Date: 20250228
  Transmission Date: 20250409
  Serious: Yes (Other)
  Sender: TEVA
  Company Number: ZA-TEVA-VS-3301408

PATIENT
  Age: 68 Year
  Sex: Female

DRUGS (1)
  1. TERIFLUNOMIDE [Suspect]
     Active Substance: TERIFLUNOMIDE
     Indication: Multiple sclerosis
     Route: 048
     Dates: start: 20250212, end: 20250217

REACTIONS (10)
  - Skin fissures [Unknown]
  - Chapped lips [Unknown]
  - Lip swelling [Unknown]
  - Periorbital swelling [Unknown]
  - Mass [Unknown]
  - Eye pruritus [Unknown]
  - Ocular hyperaemia [Unknown]
  - Eye pain [Unknown]
  - Neck mass [Unknown]
  - Erythema [Unknown]

NARRATIVE: CASE EVENT DATE: 20250216
